FAERS Safety Report 19674450 (Version 1)
Quarter: 2021Q3

REPORT INFORMATION
  Report Type: Spontaneous
  Country: US (occurrence: US)
  Receive Date: 20210809
  Receipt Date: 20210809
  Transmission Date: 20211014
  Serious: No
  Sender: FDA-Public Use
  Company Number: US-ALKEM LABORATORIES LIMITED-US-ALKEM-2020-05776

PATIENT

DRUGS (2)
  1. ITRACONAZOLE. [Suspect]
     Active Substance: ITRACONAZOLE
     Indication: PRODUCT USED FOR UNKNOWN INDICATION
     Dosage: 200 MILLIGRAM, QD
     Route: 048
  2. OZANIMOD. [Suspect]
     Active Substance: OZANIMOD
     Indication: PRODUCT USED FOR UNKNOWN INDICATION
     Dosage: 0.92 MILLIGRAM, QD
     Route: 048

REACTIONS (1)
  - Drug level increased [Unknown]
